FAERS Safety Report 5355467-1 (Version None)
Quarter: 2007Q2

REPORT INFORMATION
  Report Type: 
  Country: None (occurrence: None)
  Receive Date: 20070613
  Receipt Date: 20070605
  Transmission Date: 20071010
  Serious: Yes (Death)
  Sender: FDA-Public Use
  Company Number: FR-BAYER-200710346BFR

PATIENT

DRUGS (1)
  1. ADALAT [Suspect]
     Indication: UNEVALUABLE EVENT
     Route: 064

REACTIONS (1)
  - RESPIRATORY DISTRESS [None]
